FAERS Safety Report 6448065-X (Version None)
Quarter: 2009Q4

REPORT INFORMATION
  Report Type: 
  Country: None (occurrence: None)
  Receive Date: 20091120
  Receipt Date: 20091020
  Transmission Date: 20100525
  Serious: No
  Sender: FDA-Public Use
  Company Number: US-BAYER-200928845NA

PATIENT
  Age: 42 Year
  Sex: Female
  Weight: 98 kg

DRUGS (3)
  1. MIRENA [Suspect]
     Indication: CONTRACEPTION
     Dosage: AS USED: 20 ?G
     Route: 015
     Dates: start: 20040101, end: 20090706
  2. METFORMIN HCL [Concomitant]
     Route: 048
  3. LISINOPRIL [Concomitant]
     Route: 048

REACTIONS (3)
  - BACTERIAL TEST POSITIVE [None]
  - DYSMENORRHOEA [None]
  - METRORRHAGIA [None]
